FAERS Safety Report 8046170-8 (Version None)
Quarter: 2012Q1

REPORT INFORMATION
  Report Type: 
  Country: None (occurrence: None)
  Receive Date: 20120113
  Receipt Date: 20120113
  Transmission Date: 20120608
  Serious: Yes (Life-Threatening, Hospitalization, Other)
  Sender: FDA-Public Use
  Company Number: JP-B.I. PHARMACEUTICALS,INC./RIDGEFIELD-2011-BP-28835NB

PATIENT
  Age: 71 Year
  Sex: Male
  Weight: 62 kg

DRUGS (13)
  1. URSO 250 [Concomitant]
     Route: 065
  2. ARGAMATE [Concomitant]
     Route: 065
  3. MIGLITOL [Concomitant]
     Route: 065
  4. KALGUT [Concomitant]
     Route: 065
  5. ALDACTONE [Concomitant]
     Route: 065
  6. LANTUS [Concomitant]
     Route: 065
  7. OMEPRAZOLE [Concomitant]
     Route: 065
  8. PRADAXA [Suspect]
     Indication: ATRIAL FIBRILLATION
     Dosage: 300 MG
     Route: 048
     Dates: start: 20110801, end: 20111219
  9. CARVEDILOL [Concomitant]
     Route: 065
  10. SIGMART [Concomitant]
     Route: 065
  11. METFORMIN HCL [Concomitant]
     Route: 065
  12. PLAVIX [Suspect]
     Indication: CEREBELLAR INFARCTION
     Dosage: 75 MG
     Route: 048
     Dates: end: 20111219
  13. LASIX [Concomitant]
     Route: 065

REACTIONS (3)
  - ACTIVATED PARTIAL THROMBOPLASTIN TIME PROLONGED [None]
  - INTERNATIONAL NORMALISED RATIO INCREASED [None]
  - RENAL FAILURE ACUTE [None]
